FAERS Safety Report 7374529-0 (Version None)
Quarter: 2011Q1

REPORT INFORMATION
  Report Type: 
  Country: None (occurrence: None)
  Receive Date: 20110325
  Receipt Date: 20100215
  Transmission Date: 20110831
  Serious: No
  Sender: FDA-Public Use
  Company Number: US-MYLANLABS-2010S1002636

PATIENT
  Age: 49 Year
  Sex: Female

DRUGS (6)
  1. OXYCODONE [Concomitant]
     Indication: BREAKTHROUGH PAIN
  2. CYCLOBENZAPRINE [Concomitant]
  3. MELOXICAM [Concomitant]
  4. FENTANYL-100 [Suspect]
     Dosage: CHANGED Q48H
     Route: 062
     Dates: start: 20090901
  5. LORAZEPAM [Concomitant]
  6. FLUOXETINE [Concomitant]

REACTIONS (3)
  - ABDOMINAL PAIN [None]
  - DRUG WITHDRAWAL SYNDROME [None]
  - NAUSEA [None]
